FAERS Safety Report 7630070-9 (Version None)
Quarter: 2011Q3

REPORT INFORMATION
  Report Type: 
  Country: None (occurrence: None)
  Receive Date: 20110722
  Receipt Date: 20110711
  Transmission Date: 20111222
  Serious: Yes (Other)
  Sender: FDA-Public Use
  Company Number: US-UCBSA-037070

PATIENT
  Age: 72 Year
  Sex: Male

DRUGS (2)
  1. KEPPRA [Suspect]
     Dosage: 750 MG: 4 TABLETS
  2. VIMPAT [Suspect]
     Dosage: 200 MG 2 TABLETS

REACTIONS (1)
  - PNEUMOTHORAX [None]
